FAERS Safety Report 6711598-2 (Version None)
Quarter: 2010Q2

REPORT INFORMATION
  Report Type: 
  Country: None (occurrence: None)
  Receive Date: 20100505
  Receipt Date: 20100427
  Transmission Date: 20101027
  Serious: Yes (Other)
  Sender: FDA-Public Use
  Company Number: PHHY2010BR16873

PATIENT
  Age: 14 Year
  Sex: Male

DRUGS (1)
  1. FORASEQ [Suspect]
     Dosage: UNK
     Dates: start: 20090801

REACTIONS (2)
  - DEVICE MALFUNCTION [None]
  - PNEUMONIA [None]
